FAERS Safety Report 15619713 (Version 4)
Quarter: 2019Q2

REPORT INFORMATION
  Report Type: Report from Study
  Country: DE (occurrence: DE)
  Receive Date: 20181115
  Receipt Date: 20190531
  Transmission Date: 20190711
  Serious: Yes (Hospitalization)
  Sender: FDA-Public Use
  Company Number: DE-ROCHE-2126742

PATIENT
  Age: 20 Year
  Sex: Female

DRUGS (8)
  1. OCREVUS [Suspect]
     Active Substance: OCRELIZUMAB
     Indication: RELAPSING-REMITTING MULTIPLE SCLEROSIS
     Dosage: SHE RECEIVED THE SECOND INFUSION OF OCRELIZUMAB ON 24/OCT/2018.
     Route: 042
     Dates: start: 20180417
  2. MABTHERA [Suspect]
     Active Substance: RITUXIMAB
     Indication: RELAPSING-REMITTING MULTIPLE SCLEROSIS
     Route: 042
     Dates: start: 20161005, end: 20161019
  3. MABTHERA [Suspect]
     Active Substance: RITUXIMAB
     Indication: OFF LABEL USE
  4. GABAPENTIN. [Concomitant]
     Active Substance: GABAPENTIN
     Indication: OFF LABEL USE
     Route: 065
     Dates: end: 201802
  5. OCREVUS [Suspect]
     Active Substance: OCRELIZUMAB
     Indication: OFF LABEL USE
     Route: 042
  6. OCREVUS [Suspect]
     Active Substance: OCRELIZUMAB
     Route: 042
     Dates: start: 20190502
  7. PREGABALIN. [Concomitant]
     Active Substance: PREGABALIN
     Indication: OFF LABEL USE
     Dosage: 0-0-1
     Route: 065
  8. BACLOFEN. [Concomitant]
     Active Substance: BACLOFEN
     Indication: OFF LABEL USE
     Route: 065

REACTIONS (19)
  - Seizure [Recovering/Resolving]
  - Muscle spasticity [Not Recovered/Not Resolved]
  - Cardiovascular disorder [Recovered/Resolved]
  - Nail discolouration [Unknown]
  - Paraesthesia [Recovered/Resolved]
  - Uhthoff^s phenomenon [Recovering/Resolving]
  - Cardiovascular disorder [Recovered/Resolved]
  - Nail bed inflammation [Recovering/Resolving]
  - Peripheral swelling [Unknown]
  - Incorrect dose administered [Unknown]
  - Limb crushing injury [Unknown]
  - Nail growth abnormal [Not Recovered/Not Resolved]
  - Pain [Recovering/Resolving]
  - Hypoaesthesia [Recovered/Resolved]
  - Immunoglobulins decreased [Not Recovered/Not Resolved]
  - Intentional product use issue [Unknown]
  - Off label use [Unknown]
  - Nasopharyngitis [Recovered/Resolved]
  - Impaired healing [Recovered/Resolved]

NARRATIVE: CASE EVENT DATE: 201806
